FAERS Safety Report 4952704-X (Version None)
Quarter: 2006Q1

REPORT INFORMATION
  Report Type: 
  Country: None (occurrence: None)
  Receive Date: 20060324
  Receipt Date: 20060313
  Transmission Date: 20060701
  Serious: No
  Sender: FDA-Public Use
  Company Number: US-JNJFOC-20060103452

PATIENT
  Sex: Male
  Weight: 114.31 kg

DRUGS (9)
  1. REMICADE [Suspect]
     Route: 042
  2. SAW PALMETTO [Suspect]
  3. UNSPECIFIED OVER THE COUNTER VITAMINS [Suspect]
     Indication: DRUG USE FOR UNKNOWN INDICATION
  4. METHOTREXATE [Suspect]
  5. ALLOPURINOL [Concomitant]
  6. MOBIC [Concomitant]
  7. FOLIC ACID [Concomitant]
  8. VIOXX [Concomitant]
  9. PROZAC [Concomitant]

REACTIONS (5)
  - BLOOD CREATINE PHOSPHOKINASE INCREASED [None]
  - CHEST PAIN [None]
  - GOUT [None]
  - PHARYNGEAL ERYTHEMA [None]
  - SWELLING [None]
